FAERS Safety Report 18903391 (Version 1)
Quarter: 2021Q1

REPORT INFORMATION
  Report Type: Spontaneous
  Country: US (occurrence: US)
  Receive Date: 20210216
  Receipt Date: 20210216
  Transmission Date: 20210420
  Serious: Yes (Hospitalization)
  Sender: FDA-Public Use
  Company Number: None

PATIENT
  Age: 24 Year
  Sex: Female
  Weight: 49.5 kg

DRUGS (2)
  1. SODIUM CHLORIDE 0.9% 500 ML [Concomitant]
     Dates: start: 20201221, end: 20201222
  2. GAMMAGARD [Suspect]
     Active Substance: HUMAN IMMUNOGLOBULIN G
     Indication: AUTONOMIC NEUROPATHY
     Dosage: ?          OTHER FREQUENCY:100GM OVER 4 DAYS;?
     Route: 041
     Dates: start: 20201221, end: 20201222

REACTIONS (1)
  - Meningitis aseptic [None]

NARRATIVE: CASE EVENT DATE: 20201222
